FAERS Safety Report 5736080-0 (Version None)
Quarter: 2008Q2

REPORT INFORMATION
  Report Type: 
  Country: None (occurrence: None)
  Receive Date: 20080513
  Receipt Date: 20080502
  Transmission Date: 20081010
  Serious: Yes (Life-Threatening, Hospitalization)
  Sender: FDA-Public Use
  Company Number: US-TYCO HEALTHCARE/MALLINCKRODT-T200800546

PATIENT

DRUGS (9)
  1. OPTIRAY 300 [Suspect]
     Indication: COMPUTERISED TOMOGRAM
     Dosage: 125 ML, SINGLE
     Route: 042
     Dates: start: 20080312, end: 20080312
  2. UNASYN [Suspect]
     Route: 042
     Dates: start: 20080312, end: 20080312
  3. VYTORIN [Concomitant]
  4. ALTACE [Concomitant]
  5. ASPIRIN [Concomitant]
  6. FIBERCON [Concomitant]
  7. SURFAK [Concomitant]
  8. LEXAPRO [Concomitant]
  9. DECADRON [Concomitant]
     Route: 042
     Dates: start: 20080312

REACTIONS (5)
  - ANAPHYLACTIC REACTION [None]
  - CARDIO-RESPIRATORY ARREST [None]
  - CONVULSION [None]
  - PULSE ABSENT [None]
  - UNRESPONSIVE TO STIMULI [None]
